FAERS Safety Report 8120063 (Version 2)
Quarter: 2012Q4

REPORT INFORMATION
  Report Type: 
  Country: FR (occurrence: FR)
  Receive Date: 20110905
  Receipt Date: 20121004
  Transmission Date: 20130627
  Serious: Yes (Hospitalization)
  Sender: FDA-Public Use
  Company Number: FR-BRISTOL-MYERS SQUIBB COMPANY-16023574

PATIENT
  Age: 53 Year
  Sex: Male

DRUGS (7)
  1. ABILIFY [Suspect]
     Dosage: Duration:More than 2 years
  2. EFFEXOR [Suspect]
     Dosage: Dose reduced to 37.5 mg/d
112.5mg/d
  3. ANAFRANIL [Suspect]
     Dosage: Duration:More than 2 years
  4. EXFORGE [Suspect]
     Dosage: 1DF=5mg/160mg
Duration:Atleast 2 years
     Dates: end: 20110822
  5. AMLODIPINE BESYLATE\OLMESARTAN MEDOXOMIL [Suspect]
     Dates: start: 2012, end: 20120824
  6. LIPANTHYL [Concomitant]
     Dosage: 1DF=67.Unit not specified.
Duration:Atleast 2 years
     Route: 048
  7. FEBUXOSTAT [Concomitant]
     Route: 048

REACTIONS (6)
  - Dehydration [Recovered/Resolved]
  - Hyponatraemia [Recovered/Resolved]
  - Hypothermia [Recovered/Resolved]
  - Orthostatic hypotension [Recovered/Resolved]
  - Asthenia [Recovered/Resolved]
  - Renal failure [Recovered/Resolved]
